FAERS Safety Report 6324569-5 (Version None)
Quarter: 2009Q3

REPORT INFORMATION
  Report Type: 
  Country: None (occurrence: None)
  Receive Date: 20090824
  Receipt Date: 20090323
  Transmission Date: 20100115
  Serious: No
  Sender: FDA-Public Use
  Company Number: US-ABBOTT-09P-163-0564202-00

PATIENT
  Age: 83 Year
  Sex: Female

DRUGS (3)
  1. NIASPAN [Suspect]
     Indication: PERIPHERAL VASCULAR DISORDER
     Route: 048
     Dates: start: 20070101, end: 20070101
  2. NIASPAN [Suspect]
     Indication: BLOOD CHOLESTEROL INCREASED
     Route: 048
     Dates: start: 20090301
  3. ASPIRIN [Concomitant]
     Indication: CARDIAC DISORDER
     Route: 048

REACTIONS (2)
  - HOT FLUSH [None]
  - HYPERHIDROSIS [None]
